FAERS Safety Report 6300082-6 (Version None)
Quarter: 2009Q3

REPORT INFORMATION
  Report Type: 
  Country: None (occurrence: None)
  Receive Date: 20090803
  Receipt Date: 20090720
  Transmission Date: 20100115
  Serious: Yes (Other)
  Sender: FDA-Public Use
  Company Number: ADR8962009

PATIENT
  Sex: Female

DRUGS (2)
  1. ALENDRONIC ACID (MFR: UNKNOWN) [Suspect]
     Indication: OSTEOPOROSIS
     Dosage: 70MG/WEEK ORAL
     Route: 048
     Dates: start: 20071201, end: 20081101
  2. OVER-THE-COUNTER MEDICATIONS [Concomitant]

REACTIONS (7)
  - ABNORMAL SENSATION IN EYE [None]
  - ALTERED VISUAL DEPTH PERCEPTION [None]
  - EYE PAIN [None]
  - HEADACHE [None]
  - NIGHT BLINDNESS [None]
  - PHOTOPHOBIA [None]
  - VISION BLURRED [None]
